FAERS Safety Report 6585887-9 (Version None)
Quarter: 2010Q1

REPORT INFORMATION
  Report Type: 
  Country: None (occurrence: None)
  Receive Date: 20100217
  Receipt Date: 20100210
  Transmission Date: 20100710
  Serious: Yes (Hospitalization)
  Sender: FDA-Public Use
  Company Number: PHHO2010US02518

PATIENT
  Sex: Female
  Weight: 92.426 kg

DRUGS (11)
  1. AFINITOR [Suspect]
     Indication: GLIOBLASTOMA MULTIFORME
     Dosage: 10 MG
     Dates: start: 20090827
  2. AVASTIN [Suspect]
     Indication: GLIOBLASTOMA MULTIFORME
     Dosage: 812 MG, 82 WEEKS
     Route: 042
     Dates: start: 20090520
  3. TEMOZOLOMIDE [Suspect]
     Indication: GLIOBLASTOMA MULTIFORME
  4. KEPPRA [Concomitant]
     Dosage: UNK
     Dates: start: 20090409
  5. LORAZEPAM [Concomitant]
     Dosage: UNK
     Dates: start: 20090415
  6. PEPCID [Concomitant]
     Dosage: UNK
     Dates: start: 20090409
  7. DECADRON [Concomitant]
     Dosage: UNK
     Dates: start: 20090409
  8. CITALOPRAM HYDROBROMIDE [Concomitant]
     Dosage: UNK
     Dates: start: 20090409
  9. CALAN - SLOW RELEASE [Concomitant]
     Dosage: UNK
     Dates: start: 20100128
  10. DEPAKOTE [Concomitant]
     Dosage: UNK
     Dates: start: 20090812
  11. METOPROLOL TARTRATE [Concomitant]
     Dosage: UNK
     Dates: start: 20090819

REACTIONS (6)
  - ATELECTASIS [None]
  - DIZZINESS [None]
  - DYSSTASIA [None]
  - HYPOTENSION [None]
  - LUNG INFILTRATION [None]
  - TACHYCARDIA [None]
